FAERS Safety Report 9270841 (Version 1)
Quarter: 2013Q2

REPORT INFORMATION
  Report Type: Report from Study
  Country: AR (occurrence: AR)
  Receive Date: 20130505
  Receipt Date: 20130505
  Transmission Date: 20140414
  Serious: Yes (Other)
  Sender: FDA-Public Use
  Company Number: PHHY2013AR039960

PATIENT
  Sex: Female

DRUGS (2)
  1. RASILEZ [Suspect]
     Indication: HYPERTENSION
     Dosage: 1 DF (300MG), UNK
     Route: 048
  2. RASILAMLO [Suspect]
     Indication: HYPERTENSION
     Dosage: 1 DF (300MG ALISK/5MG AMLO), UNK
     Route: 048

REACTIONS (5)
  - Chest pain [Recovering/Resolving]
  - Tongue paralysis [Recovering/Resolving]
  - Hypertension [Recovering/Resolving]
  - Hypersensitivity [Recovering/Resolving]
  - Cough [Recovering/Resolving]
